FAERS Safety Report 13410634 (Version 2)
Quarter: 2017Q4

REPORT INFORMATION
  Report Type: Spontaneous
  Country: US (occurrence: US)
  Receive Date: 20170406
  Receipt Date: 20171123
  Transmission Date: 20180320
  Serious: No
  Sender: FDA-Public Use
  Company Number: US-JNJFOC-20170301288

PATIENT
  Sex: Male

DRUGS (18)
  1. RISPERIDONE. [Suspect]
     Active Substance: RISPERIDONE
     Indication: SCHIZOAFFECTIVE DISORDER
     Route: 048
     Dates: start: 20041106
  2. RISPERIDONE. [Suspect]
     Active Substance: RISPERIDONE
     Indication: POST-TRAUMATIC STRESS DISORDER
     Route: 048
     Dates: start: 20050613, end: 20111115
  3. RISPERDAL [Suspect]
     Active Substance: RISPERIDONE
     Indication: SCHIZOAFFECTIVE DISORDER
     Dosage: IN VARYING DOSES 0.5 MG, 1 MG, 1.5 MG, 2.5 MG, 3 MG
     Route: 048
     Dates: start: 20030708, end: 20030813
  4. RISPERDAL [Suspect]
     Active Substance: RISPERIDONE
     Indication: BIPOLAR DISORDER
     Dosage: IN VARYING DOSES 0.5 MG, 1 MG, 1.5 MG, 2.5 MG, 3 MG
     Route: 048
     Dates: start: 20030708, end: 20030813
  5. RISPERDAL [Suspect]
     Active Substance: RISPERIDONE
     Indication: POST-TRAUMATIC STRESS DISORDER
     Dosage: IN VARYING DOSES 0.5 MG, 1 MG, 1.5 MG, 2.5 MG, 3 MG
     Route: 048
     Dates: start: 20050613, end: 20111115
  6. RISPERDAL [Suspect]
     Active Substance: RISPERIDONE
     Indication: SCHIZOAFFECTIVE DISORDER
     Dosage: IN VARYING DOSES 0.5 MG, 1 MG, 1.5 MG, 2.5 MG, 3 MG
     Route: 048
     Dates: start: 20041106
  7. RISPERIDONE. [Suspect]
     Active Substance: RISPERIDONE
     Indication: POST-TRAUMATIC STRESS DISORDER
     Route: 048
     Dates: start: 20030708, end: 20030813
  8. RISPERIDONE. [Suspect]
     Active Substance: RISPERIDONE
     Indication: SCHIZOAFFECTIVE DISORDER
     Route: 048
     Dates: start: 20030708, end: 20030813
  9. RISPERIDONE. [Suspect]
     Active Substance: RISPERIDONE
     Indication: SCHIZOAFFECTIVE DISORDER
     Route: 048
     Dates: start: 20050613, end: 20111115
  10. RISPERDAL [Suspect]
     Active Substance: RISPERIDONE
     Indication: BIPOLAR DISORDER
     Dosage: IN VARYING DOSES 0.5 MG, 1 MG, 1.5 MG, 2.5 MG, 3 MG
     Route: 048
     Dates: start: 20041106
  11. RISPERIDONE. [Suspect]
     Active Substance: RISPERIDONE
     Indication: POST-TRAUMATIC STRESS DISORDER
     Route: 048
     Dates: start: 20041106
  12. RISPERDAL [Suspect]
     Active Substance: RISPERIDONE
     Indication: BIPOLAR DISORDER
     Dosage: IN VARYING DOSES 0.5 MG, 1 MG, 1.5 MG, 2.5 MG, 3 MG
     Route: 048
     Dates: start: 20050613, end: 20111115
  13. RISPERDAL [Suspect]
     Active Substance: RISPERIDONE
     Indication: POST-TRAUMATIC STRESS DISORDER
     Dosage: IN VARYING DOSES 0.5 MG, 1 MG, 1.5 MG, 2.5 MG, 3 MG
     Route: 048
     Dates: start: 20030708, end: 20030813
  14. RISPERDAL [Suspect]
     Active Substance: RISPERIDONE
     Indication: SCHIZOAFFECTIVE DISORDER
     Dosage: IN VARYING DOSES 0.5 MG, 1 MG, 1.5 MG, 2.5 MG, 3 MG
     Route: 048
     Dates: start: 20050613, end: 20111115
  15. RISPERIDONE. [Suspect]
     Active Substance: RISPERIDONE
     Indication: BIPOLAR DISORDER
     Route: 048
     Dates: start: 20030708, end: 20030813
  16. RISPERIDONE. [Suspect]
     Active Substance: RISPERIDONE
     Indication: BIPOLAR DISORDER
     Route: 048
     Dates: start: 20050613, end: 20111115
  17. RISPERDAL [Suspect]
     Active Substance: RISPERIDONE
     Indication: POST-TRAUMATIC STRESS DISORDER
     Dosage: IN VARYING DOSES 0.5 MG, 1 MG, 1.5 MG, 2.5 MG, 3 MG
     Route: 048
     Dates: start: 20041106
  18. RISPERIDONE. [Suspect]
     Active Substance: RISPERIDONE
     Indication: BIPOLAR DISORDER
     Route: 048
     Dates: start: 20041106

REACTIONS (2)
  - Gynaecomastia [Unknown]
  - Emotional disorder [Unknown]
